FAERS Safety Report 15839776 (Version 5)
Quarter: 2019Q2

REPORT INFORMATION
  Report Type: Report from Study
  Country: AU (occurrence: AU)
  Receive Date: 20190117
  Receipt Date: 20190502
  Transmission Date: 20190711
  Serious: Yes (Life-Threatening, Hospitalization)
  Sender: FDA-Public Use
  Company Number: AU-EISAI MEDICAL RESEARCH-EC-2018-049601

PATIENT
  Age: 81 Year
  Sex: Male
  Weight: 101.1 kg

DRUGS (12)
  1. LENVATINIB [Suspect]
     Active Substance: LENVATINIB
     Dosage: BLINDED DOSE
     Route: 048
     Dates: start: 20190107, end: 20190314
  2. IMODIUM [Concomitant]
     Active Substance: LOPERAMIDE HYDROCHLORIDE
  3. LENVATINIB [Suspect]
     Active Substance: LENVATINIB
     Indication: THYROID CANCER
     Dosage: BLINDED DOSE
     Route: 048
     Dates: start: 20180514, end: 20181028
  4. IRBESARTAN. [Concomitant]
     Active Substance: IRBESARTAN
  5. THYROXINE [Concomitant]
     Active Substance: LEVOTHYROXINE
  6. INSULIN [Concomitant]
     Active Substance: INSULIN NOS
  7. REANDRON [Concomitant]
     Active Substance: TESTOSTERONE
  8. ALLOPURINOL. [Concomitant]
     Active Substance: ALLOPURINOL
  9. LENVATINIB [Suspect]
     Active Substance: LENVATINIB
     Dosage: BLINDED DOSE
     Route: 048
     Dates: start: 20181112, end: 20181221
  10. CLEXANE [Concomitant]
     Active Substance: ENOXAPARIN SODIUM
  11. PARACETAMOL [Concomitant]
     Active Substance: ACETAMINOPHEN
  12. B12 INJECTION [Concomitant]

REACTIONS (3)
  - Skin infection [Not Recovered/Not Resolved]
  - Pulmonary embolism [Recovering/Resolving]
  - Cellulitis [Not Recovered/Not Resolved]

NARRATIVE: CASE EVENT DATE: 20181221
